FAERS Safety Report 4357109-0 (Version None)
Quarter: 2004Q2

REPORT INFORMATION
  Report Type: 
  Country: None (occurrence: None)
  Receive Date: 20040512
  Receipt Date: 20030409
  Transmission Date: 20050107
  Serious: Yes (Death, Other)
  Sender: FDA-Public Use
  Company Number: US-BRISTOL-MYERS SQUIBB COMPANY-12236352

PATIENT
  Age: 40 Year
  Sex: Female

DRUGS (8)
  1. STADOL [Suspect]
     Indication: MIGRAINE
     Route: 045
     Dates: start: 19940701
  2. AMITRIPTYLINE HCL [Concomitant]
  3. HYDROXYZINE [Concomitant]
  4. PROPACET 100 [Concomitant]
  5. PROMETHAZINE [Concomitant]
  6. HYDROCODONE + ACETAMINOPHEN [Concomitant]
  7. DEPAKOTE [Concomitant]
  8. CIMETIDINE HCL [Concomitant]

REACTIONS (2)
  - COMPLETED SUICIDE [None]
  - DEPENDENCE [None]
